FAERS Safety Report 5377822-6 (Version None)
Quarter: 2007Q3

REPORT INFORMATION
  Report Type: 
  Country: None (occurrence: None)
  Receive Date: 20070703
  Receipt Date: 20070626
  Transmission Date: 20080115
  Serious: Yes (Death, Hospitalization)
  Sender: FDA-Public Use
  Company Number: BE-PFIZER INC-2007052767

PATIENT
  Age: 82 Year
  Sex: Female

DRUGS (9)
  1. METHYLPREDNISOLONE [Suspect]
     Indication: TEMPORAL ARTERITIS
  2. PHENPROCOUMON [Suspect]
     Indication: TEMPORAL ARTERITIS
  3. LISINOPRIL [Concomitant]
  4. FUROSEMIDE [Concomitant]
  5. CELIPROLOL [Concomitant]
  6. CITALOPRAM HYDROBROMIDE [Concomitant]
  7. ESOMEPRAZOLE MAGNESIUM [Concomitant]
  8. MULTIVITAMIN [Concomitant]
  9. MAGNESIUM SULFATE [Concomitant]

REACTIONS (1)
  - CALCIPHYLAXIS [None]
